FAERS Safety Report 9121899 (Version 2)
Quarter: 2013Q2

REPORT INFORMATION
  Report Type: Spontaneous
  Country: US (occurrence: US)
  Receive Date: 20130114
  Receipt Date: 20130507
  Transmission Date: 20140414
  Serious: No
  Sender: FDA-Public Use
  Company Number: US-009507513-1301USA001772

PATIENT
  Sex: Female

DRUGS (1)
  1. COZAAR [Suspect]

REACTIONS (1)
  - Blood pressure fluctuation [Unknown]
